FAERS Safety Report 7605450-8 (Version None)
Quarter: 2011Q3

REPORT INFORMATION
  Report Type: 
  Country: None (occurrence: None)
  Receive Date: 20110713
  Receipt Date: 20110707
  Transmission Date: 20111222
  Serious: No
  Sender: FDA-Public Use
  Company Number: US-PFIZER INC-2011154435

PATIENT
  Age: 62 Year
  Sex: Male

DRUGS (2)
  1. CLINDAMYCIN HCL [Suspect]
     Indication: TOOTH DISORDER
     Dosage: 300 MG, EVERY 6 HOURS
     Route: 048
     Dates: start: 20110629
  2. IBUPROFEN [Concomitant]
     Indication: PAIN
     Dosage: 800 MG, AS NEEDED
     Route: 048

REACTIONS (1)
  - BLOOD GLUCOSE INCREASED [None]
